FAERS Safety Report 14777709 (Version 2)
Quarter: 2018Q2

REPORT INFORMATION
  Report Type: Spontaneous
  Country: US (occurrence: US)
  Receive Date: 20180419
  Receipt Date: 20180527
  Transmission Date: 20180711
  Serious: No
  Sender: FDA-Public Use
  Company Number: US-JNJFOC-20180406839

PATIENT
  Age: 82 Year
  Sex: Female
  Weight: 68.04 kg

DRUGS (3)
  1. XARELTO [Suspect]
     Active Substance: RIVAROXABAN
     Indication: CEREBROVASCULAR ACCIDENT PROPHYLAXIS
     Route: 048
     Dates: start: 201802
  2. XARELTO [Suspect]
     Active Substance: RIVAROXABAN
     Indication: ATRIAL FIBRILLATION
     Route: 048
     Dates: start: 201802
  3. CALCIUM [Concomitant]
     Active Substance: CALCIUM
     Dosage: 1600 IU OF VITAMIN D3
     Route: 065

REACTIONS (4)
  - Inappropriate schedule of drug administration [Unknown]
  - Asthenia [Unknown]
  - Product label issue [Unknown]
  - Off label use [Unknown]

NARRATIVE: CASE EVENT DATE: 201802
